FAERS Safety Report 16965701 (Version 1)
Quarter: 2019Q4

REPORT INFORMATION
  Report Type: Spontaneous
  Country: CH (occurrence: CH)
  Receive Date: 20191028
  Receipt Date: 20191028
  Transmission Date: 20200122
  Serious: Yes (Hospitalization, Other)
  Sender: FDA-Public Use
  Company Number: CH-PFIZER INC-2019459708

PATIENT
  Age: 74 Year
  Sex: Female

DRUGS (15)
  1. COVERSUM N [Concomitant]
     Active Substance: PERINDOPRIL
     Dosage: 1 / 2-0-0
  2. PREDNISONE. [Concomitant]
     Active Substance: PREDNISONE
     Dosage: 11 / 2-0-0
  3. ASPIRIN CARDIO [Concomitant]
     Active Substance: ASPIRIN
     Dosage: 1-0-0
  4. FRAGMIN [Suspect]
     Active Substance: DALTEPARIN SODIUM
     Dosage: 5000 IU, 1X/DAY
     Route: 058
     Dates: start: 20190601, end: 20190602
  5. DAFALGAN [Suspect]
     Active Substance: ACETAMINOPHEN
     Dosage: 1 DF, 4X/DAY (1G TABLET MAX. 4X / DAY)
     Route: 048
     Dates: start: 20190601, end: 20190602
  6. ESTROFEM [ESTRADIOL] [Concomitant]
     Active Substance: ESTRADIOL
     Dosage: 1-0-0
  7. CYMBALTA [Concomitant]
     Active Substance: DULOXETINE HYDROCHLORIDE
     Dosage: 1-0-0
  8. CLINDAMYCIN PHOSPHATE. [Suspect]
     Active Substance: CLINDAMYCIN PHOSPHATE
     Dosage: 600 MG, 3X/DAY
     Route: 042
     Dates: start: 20190601, end: 20190602
  9. XELJANZ [Concomitant]
     Active Substance: TOFACITINIB CITRATE
     Dosage: 2-0-2
  10. METOJECT [Concomitant]
     Active Substance: METHOTREXATE SODIUM
     Dosage: UNK UNK, WEEKLY  ( EVERY FRIDAY)
  11. SOLU-CORTEF [Suspect]
     Active Substance: HYDROCORTISONE SODIUM SUCCINATE
     Dosage: 100 MG, 1X/DAY
     Route: 042
     Dates: start: 20190601, end: 20190602
  12. SORTIS [Concomitant]
     Active Substance: ATORVASTATIN
     Dosage: 1-0-0
  13. ACIDUM FOLICUM [Concomitant]
     Active Substance: FOLIC ACID
     Dosage: UNK
  14. VALTREX [Concomitant]
     Active Substance: VALACYCLOVIR HYDROCHLORIDE
     Dosage: 1-0-1
  15. PRIVIGEN [Concomitant]
     Active Substance: HUMAN IMMUNOGLOBULIN G
     Dosage: 4 WEEKLY PRIVIGEN INFUSION

REACTIONS (1)
  - Acute generalised exanthematous pustulosis [Recovered/Resolved]

NARRATIVE: CASE EVENT DATE: 20190602
